FAERS Safety Report 8718796 (Version 2)
Quarter: 2013Q4

REPORT INFORMATION
  Report Type: Spontaneous
  Country: US (occurrence: US)
  Receive Date: 20120810
  Receipt Date: 20131031
  Transmission Date: 20140711
  Serious: No
  Sender: FDA-Public Use
  Company Number: US-009507513-2012SP027139

PATIENT
  Age: 69 Year
  Sex: Female
  Weight: 62.6 kg

DRUGS (15)
  1. CLARITIN-D-24 [Suspect]
     Indication: HYPERSENSITIVITY
     Dosage: 10 MG, QD
     Route: 048
     Dates: start: 201111, end: 201203
  2. CLARITIN-D-24 [Suspect]
     Dosage: 10 MG, QD
     Route: 048
     Dates: start: 201111, end: 201203
  3. CLARITIN-D-24 [Suspect]
     Dosage: 10 MG, QD
     Route: 048
     Dates: start: 2012, end: 201204
  4. CLARITIN-D-24 [Suspect]
     Dosage: 10 MG, QD
     Route: 048
     Dates: start: 2012, end: 201204
  5. CLARITIN-D-24 [Suspect]
     Dosage: 10 MG, QD
     Route: 048
     Dates: start: 2012, end: 201204
  6. VITAMIN E [Concomitant]
     Indication: PRODUCT USED FOR UNKNOWN INDICATION
     Dosage: UNK UNK, UNKNOWN
  7. CYANOCOBALAMIN [Concomitant]
     Indication: PRODUCT USED FOR UNKNOWN INDICATION
     Dosage: UNK UNK, UNKNOWN
  8. ASCORBIC ACID [Concomitant]
     Indication: PRODUCT USED FOR UNKNOWN INDICATION
     Dosage: UNK UNK, UNKNOWN
  9. CHOLECALCIFEROL [Concomitant]
     Indication: PRODUCT USED FOR UNKNOWN INDICATION
     Dosage: UNK UNK, UNKNOWN
  10. OMEGA-3 MARINE TRIGLYCERIDES [Concomitant]
     Indication: PRODUCT USED FOR UNKNOWN INDICATION
     Dosage: UNK UNK, UNKNOWN
  11. CELEBREX [Concomitant]
     Indication: ARTHRITIS
     Dosage: 200 MG, UNKNOWN
  12. RELA [Concomitant]
     Indication: ARTHRITIS
     Dosage: UNK UNK, UNKNOWN
  13. LEVOXYL [Concomitant]
     Indication: THYROID DISORDER
     Dosage: 150 MG, UNKNOWN
  14. METFORMIN HYDROCHLORIDE [Concomitant]
     Indication: DIABETES MELLITUS
     Dosage: 500 MG, BID
  15. TRIAMTERENE [Concomitant]
     Indication: OEDEMA
     Dosage: UNK UNK, UNKNOWN

REACTIONS (3)
  - Blood pressure increased [Recovered/Resolved]
  - Heart rate increased [Recovered/Resolved]
  - Drug effect increased [Recovered/Resolved]
